FAERS Safety Report 18032849 (Version 1)
Quarter: 2020Q3

REPORT INFORMATION
  Report Type: Spontaneous
  Country: US (occurrence: US)
  Receive Date: 20200716
  Receipt Date: 20200716
  Transmission Date: 20201103
  Serious: Yes (Other)
  Sender: FDA-Public Use
  Company Number: US-PFIZER INC-2020270621

PATIENT
  Age: 48 Year
  Sex: Female

DRUGS (1)
  1. LYRICA [Suspect]
     Active Substance: PREGABALIN
     Dosage: UNK

REACTIONS (6)
  - COVID-19 [Unknown]
  - Blood potassium decreased [Unknown]
  - Loss of consciousness [Unknown]
  - Bronchitis [Unknown]
  - Confusional state [Unknown]
  - Restless legs syndrome [Unknown]
